FAERS Safety Report 6369894-7 (Version None)
Quarter: 2009Q3

REPORT INFORMATION
  Report Type: 
  Country: None (occurrence: None)
  Receive Date: 20090923
  Receipt Date: 20070504
  Transmission Date: 20100115
  Serious: Yes (Other)
  Sender: FDA-Public Use
  Company Number: US-ASTRAZENECA-2006UW10821

PATIENT
  Age: 35 Year
  Sex: Female
  Weight: 105.7 kg

DRUGS (3)
  1. SEROQUEL [Suspect]
     Indication: BIPOLAR DISORDER
     Dosage: DAILY DOSE RANGE OF 600-1000 MG
     Route: 048
     Dates: start: 20050419
  2. RISPERDAL [Concomitant]
     Dates: start: 20050101
  3. ZYPREXA [Concomitant]
     Dates: start: 20050101

REACTIONS (2)
  - HYPERGLYCAEMIA [None]
  - PANCREATITIS [None]
